FAERS Safety Report 16689649 (Version 2)
Quarter: 2019Q4

REPORT INFORMATION
  Report Type: Spontaneous
  Country: JP (occurrence: JP)
  Receive Date: 20190809
  Receipt Date: 20191018
  Transmission Date: 20200122
  Serious: Yes (Life-Threatening, Hospitalization)
  Sender: FDA-Public Use
  Company Number: JP-EISAI MEDICAL RESEARCH-EC-2019-060444

PATIENT
  Sex: Male

DRUGS (7)
  1. SAMSCA [Concomitant]
     Active Substance: TOLVAPTAN
     Indication: ASCITES
     Dosage: 15 MG, FREQUENCY UNKNOWN
     Dates: start: 201907
  2. LENVIMA [Suspect]
     Active Substance: LENVATINIB
     Indication: HEPATOCELLULAR CARCINOMA
     Dosage: DOSAGE AND FREQUENCY UNKNOWN
     Route: 048
     Dates: end: 201907
  3. LASIX [Concomitant]
     Active Substance: FUROSEMIDE
     Indication: ASCITES
     Dosage: 20 MG, FREQUENCY UNKNOWN
     Dates: start: 201907
  4. HANP [Concomitant]
     Active Substance: CARPERITIDE
     Indication: RENAL FAILURE
     Dosage: DOSAGE AND FREQUENCY UNKNOWN
     Dates: start: 201907
  5. KALIMATE [Concomitant]
     Active Substance: CALCIUM POLYSTYRENE SULFONATE
     Indication: RENAL FAILURE
     Dosage: DOSAGE AND FREQUENCY UNKNOWN
     Dates: start: 201907
  6. THYRADIN S [Concomitant]
     Active Substance: LEVOTHYROXINE SODIUM
     Indication: HYPOTHYROIDISM
     Dates: start: 2019
  7. ALDACTONE A [Concomitant]
     Active Substance: SPIRONOLACTONE
     Indication: ASCITES
     Dosage: 100 MG, FREQUENCY UNKNOWN
     Dates: start: 201907

REACTIONS (4)
  - Decreased appetite [Recovered/Resolved]
  - Hypothyroidism [Not Recovered/Not Resolved]
  - Cardiac failure [Recovered/Resolved]
  - Renal failure [Recovering/Resolving]

NARRATIVE: CASE EVENT DATE: 2019
